FAERS Safety Report 12782935 (Version 1)
Quarter: 2016Q3

REPORT INFORMATION
  Report Type: Spontaneous
  Country: US (occurrence: US)
  Receive Date: 20160927
  Receipt Date: 20160927
  Transmission Date: 20161109
  Serious: Yes (Other)
  Sender: FDA-Public Use
  Company Number: US-PFIZER INC-2016447852

PATIENT
  Age: 40 Year
  Sex: Female
  Weight: 53.98 kg

DRUGS (1)
  1. CHANTIX [Suspect]
     Active Substance: VARENICLINE TARTRATE
     Dates: start: 20160908, end: 20160921

REACTIONS (1)
  - Chest pain [Unknown]
